FAERS Safety Report 5677367-X (Version None)
Quarter: 2008Q1

REPORT INFORMATION
  Report Type: 
  Country: None (occurrence: None)
  Receive Date: 20080324
  Receipt Date: 20080312
  Transmission Date: 20080703
  Serious: Yes (Hospitalization)
  Sender: FDA-Public Use
  Company Number: FR-PFIZER INC-2008023810

PATIENT
  Age: 80 Year
  Sex: Female

DRUGS (9)
  1. ZOLOFT [Interacting]
     Indication: DEPRESSION
     Dosage: TEXT:2 DOSAGE FORMS-FREQ:DAILY
     Route: 048
  2. LUDIOMIL [Interacting]
     Indication: DEPRESSION
     Dosage: TEXT:0.5 DOSAGE FORMS-FREQ:DAILY
     Route: 048
  3. STILNOX [Suspect]
     Indication: INSOMNIA
     Dosage: TEXT:1 DOSAGE FORM-FREQ:DAILY
     Route: 048
  4. ESBERIVEN [Suspect]
     Indication: VENOUS STASIS
     Dosage: TEXT:1 DOSAGE FORM-FREQ:DAILY
     Route: 048
  5. CERVOXAN [Suspect]
     Dosage: TEXT:2 DOSAGE FORMS
     Route: 048
     Dates: start: 20071005, end: 20071013
  6. POLY-KARAYA [Concomitant]
     Indication: GASTROINTESTINAL DISORDER
     Dosage: TEXT:3 DOSAGE FORMS
     Route: 048
  7. ELISOR [Concomitant]
     Dosage: TEXT:1 DOSAGE FORM
     Route: 048
  8. NOCTAMID [Concomitant]
     Route: 048
  9. ALPHAGAN [Concomitant]
     Dosage: TEXT:1 DOSAGE FORM

REACTIONS (6)
  - DRUG INTERACTION [None]
  - EXCORIATION [None]
  - FALL [None]
  - INFLAMMATION [None]
  - ORTHOSTATIC HYPOTENSION [None]
  - PERIORBITAL HAEMATOMA [None]
